FAERS Safety Report 6782060-6 (Version None)
Quarter: 2010Q2

REPORT INFORMATION
  Report Type: 
  Country: None (occurrence: None)
  Receive Date: 20100621
  Receipt Date: 20100617
  Transmission Date: 20101027
  Serious: Yes (Hospitalization)
  Sender: FDA-Public Use
  Company Number: B0657756A

PATIENT
  Sex: Female

DRUGS (22)
  1. AUGMENTIN '125' [Suspect]
     Indication: PROPHYLAXIS
     Dosage: 2G PER DAY
     Route: 042
     Dates: start: 20100517, end: 20100517
  2. ATRACURIUM [Suspect]
     Dosage: 40MG PER DAY
     Route: 042
     Dates: start: 20100517, end: 20100517
  3. PROPOFOL [Suspect]
     Route: 042
     Dates: start: 20100517, end: 20100517
  4. SUFENTA PRESERVATIVE FREE [Suspect]
     Route: 042
     Dates: start: 20100517, end: 20100517
  5. NEURONTIN [Suspect]
     Indication: PREMEDICATION
     Route: 048
     Dates: start: 20100516, end: 20100518
  6. NORMACOL [Suspect]
     Indication: DRUG USE FOR UNKNOWN INDICATION
     Route: 054
     Dates: start: 20100516
  7. DEXAMETHASONE [Suspect]
     Dosage: .4MG PER DAY
     Route: 042
     Dates: start: 20100517, end: 20100517
  8. EPHEDRINE [Suspect]
     Route: 042
     Dates: start: 20100517, end: 20100517
  9. BETADINE [Suspect]
     Indication: PREOPERATIVE CARE
     Route: 061
     Dates: start: 20100517, end: 20100517
  10. NAROPIN [Suspect]
     Route: 065
     Dates: start: 20100517, end: 20100517
  11. DROPERIDOL [Suspect]
     Route: 042
     Dates: start: 20100517, end: 20100519
  12. LOVENOX [Suspect]
     Indication: PREMEDICATION
     Dosage: .4ML PER DAY
     Route: 058
     Dates: start: 20100516, end: 20100518
  13. KETAMINE [Suspect]
     Dosage: 10MCG PER DAY
     Route: 042
     Dates: start: 20100517, end: 20100517
  14. SEVORANE [Suspect]
     Route: 055
     Dates: start: 20100517, end: 20100517
  15. OXYGENE + PROTOXYDE AZOTE [Suspect]
     Route: 055
     Dates: start: 20100517, end: 20100517
  16. BETADINE [Concomitant]
     Route: 050
     Dates: start: 20100516, end: 20100517
  17. RINGER'S [Concomitant]
     Route: 065
     Dates: start: 20100517, end: 20100517
  18. MORPHINE [Concomitant]
     Route: 065
     Dates: start: 20100517, end: 20100519
  19. NEXIUM [Concomitant]
     Route: 065
     Dates: start: 20100517
  20. PERFALGAN [Concomitant]
     Route: 065
     Dates: start: 20100517, end: 20100523
  21. ZOPHREN [Concomitant]
     Route: 065
     Dates: start: 20100518
  22. ACUPAN [Concomitant]
     Route: 065

REACTIONS (6)
  - BLOOD CREATININE INCREASED [None]
  - HAEMATURIA [None]
  - LYMPHOPENIA [None]
  - OLIGURIA [None]
  - PRODUCT QUALITY ISSUE [None]
  - RENAL FAILURE ACUTE [None]
